FAERS Safety Report 10562487 (Version 1)
Quarter: 2014Q4

REPORT INFORMATION
  Report Type: Spontaneous
  Country: US (occurrence: None)
  Receive Date: 20141103
  Receipt Date: 20141103
  Transmission Date: 20150529
  Serious: No
  Sender: FDA-Public Use
  Company Number: None

PATIENT
  Age: 69 Year
  Sex: Male
  Weight: 72.58 kg

DRUGS (2)
  1. ATORVASTATIN [Suspect]
     Active Substance: ATORVASTATIN
     Indication: CAROTID ARTERY STENOSIS
     Dosage: 1 TABLET ONCE DAILY TAKEN BY MOUTH
     Route: 048
     Dates: start: 20140905, end: 20140920
  2. CLOPIDOGREL [Suspect]
     Active Substance: CLOPIDOGREL BISULFATE
     Indication: CAROTID ARTERY STENOSIS
     Dosage: 1 ONCE DAILY TAKEN BY MOUTH
     Route: 048
     Dates: start: 20140905, end: 20140920

REACTIONS (10)
  - Fatigue [None]
  - Muscular weakness [None]
  - Neuropathy peripheral [None]
  - Irritable bowel syndrome [None]
  - Dyspnoea [None]
  - Pollakiuria [None]
  - Hyperhidrosis [None]
  - Arthralgia [None]
  - Vision blurred [None]
  - Amnesia [None]

NARRATIVE: CASE EVENT DATE: 20140920
